FAERS Safety Report 10753418 (Version 1)
Quarter: 2015Q1

REPORT INFORMATION
  Report Type: Spontaneous
  Country: US (occurrence: None)
  Receive Date: 20150129
  Receipt Date: 20150129
  Transmission Date: 20150721
  Serious: Yes (Disabling)
  Sender: FDA-Public Use
  Company Number: None

PATIENT
  Age: 37 Year
  Sex: Female
  Weight: 111.59 kg

DRUGS (1)
  1. NEURONTIN [Suspect]
     Active Substance: GABAPENTIN
     Indication: MIGRAINE
     Dosage: 2 PILLS 1 X DAY, ONCE DAILY, TAKEN BY MOUTH
     Route: 048
     Dates: start: 20140908, end: 20150101

REACTIONS (4)
  - Dyspnoea [None]
  - Cough [None]
  - Reading disorder [None]
  - Chest discomfort [None]

NARRATIVE: CASE EVENT DATE: 20050920
